FAERS Safety Report 17229606 (Version 1)
Quarter: 2020Q1

REPORT INFORMATION
  Report Type: Spontaneous
  Country: GB (occurrence: GB)
  Receive Date: 20200103
  Receipt Date: 20200103
  Transmission Date: 20200409
  Serious: Yes (Other)
  Sender: FDA-Public Use
  Company Number: GB-MYLANLABS-2020M1000327

PATIENT
  Age: 51 Year
  Sex: Male
  Weight: 64 kg

DRUGS (5)
  1. LIDOCAINE. [Concomitant]
     Active Substance: LIDOCAINE
     Dosage: AS PER PROCEDURE (VIA ADMIN AND DISPENSE SYSTEM)
     Dates: start: 20191113, end: 20191213
  2. ZALURON XL [Concomitant]
     Dosage: NIGHT WITH 300MG TABLET (450MG AT...
     Dates: start: 20181212
  3. TRAZODONE [Concomitant]
     Active Substance: TRAZODONE HYDROCHLORIDE
     Dosage: NIGHT
     Dates: start: 20180601
  4. MONTELUKAST [Suspect]
     Active Substance: MONTELUKAST SODIUM
     Indication: PRODUCT USED FOR UNKNOWN INDICATION
     Dosage: 10 MILLIGRAM, QD
     Dates: start: 20170830
  5. KENALOG [Concomitant]
     Active Substance: TRIAMCINOLONE ACETONIDE
     Dosage: AS PER PROCEDURE
     Dates: start: 20191113, end: 20191116

REACTIONS (2)
  - Suicidal ideation [Not Recovered/Not Resolved]
  - Condition aggravated [Unknown]

NARRATIVE: CASE EVENT DATE: 20191217
